FAERS Safety Report 19151162 (Version 1)
Quarter: 2021Q2

REPORT INFORMATION
  Report Type: Spontaneous
  Country: US (occurrence: US)
  Receive Date: 20210419
  Receipt Date: 20210419
  Transmission Date: 20210717
  Serious: No
  Sender: FDA-Public Use
  Company Number: NVSC2021US086896

PATIENT
  Sex: Female

DRUGS (4)
  1. TEGRETOL [Suspect]
     Active Substance: CARBAMAZEPINE
     Dosage: 300 MG
     Route: 065
  2. LETROZOLE. [Concomitant]
     Active Substance: LETROZOLE
     Indication: PRODUCT USED FOR UNKNOWN INDICATION
     Dosage: UNK
     Route: 065
  3. IBRANCE [Suspect]
     Active Substance: PALBOCICLIB
     Indication: BREAST CANCER STAGE IV
     Dosage: 125 MG, QD
     Route: 048
     Dates: start: 20210325
  4. TEGRETOL [Suspect]
     Active Substance: CARBAMAZEPINE
     Indication: PRODUCT USED FOR UNKNOWN INDICATION
     Dosage: 200 MG
     Route: 065

REACTIONS (2)
  - Paraesthesia [Unknown]
  - Hypoaesthesia [Unknown]
